FAERS Safety Report 11199939 (Version 1)
Quarter: 2015Q2

REPORT INFORMATION
  Report Type: Spontaneous
  Country: US (occurrence: US)
  Receive Date: 20150618
  Receipt Date: 20150618
  Transmission Date: 20150821
  Serious: Yes (Other)
  Sender: FDA-Public Use
  Company Number: US-BAYER-2015-353366

PATIENT
  Age: 43 Year
  Sex: Female

DRUGS (1)
  1. COPPERTONE CLEARLY SHEER FOR BEACH AND POOL SPF 50 PLUS [Suspect]
     Active Substance: AVOBENZONE\HOMOSALATE\OCTISALATE\OCTOCRYLENE\OXYBENZONE
     Indication: PROPHYLAXIS
     Dosage: 1 DF, PRN
     Route: 061
     Dates: start: 20150613

REACTIONS (3)
  - Eye irritation [Recovered/Resolved]
  - Eye burns [Recovered/Resolved]
  - Eye pruritus [Recovered/Resolved]

NARRATIVE: CASE EVENT DATE: 20150613
